FAERS Safety Report 22339197 (Version 1)
Quarter: 2023Q2

REPORT INFORMATION
  Report Type: Spontaneous
  Country: US (occurrence: US)
  Receive Date: 20230518
  Receipt Date: 20230518
  Transmission Date: 20230721
  Serious: No
  Sender: FDA-Public Use
  Company Number: US-ADC THERAPEUTICS SA-ADC-2023-000095

PATIENT
  Age: 81 Year
  Sex: Male
  Weight: 74.83 kg

DRUGS (1)
  1. ZYNLONTA [Suspect]
     Active Substance: LONCASTUXIMAB TESIRINE-LPYL
     Indication: Lymphoma
     Dosage: 11.2 MILLIGRAM, Q3WK
     Route: 042
     Dates: start: 20230307

REACTIONS (3)
  - Dizziness [Recovered/Resolved]
  - Pyrexia [Recovered/Resolved]
  - Abdominal discomfort [Recovered/Resolved]

NARRATIVE: CASE EVENT DATE: 20230307
